FAERS Safety Report 18590609 (Version 2)
Quarter: 2020Q4

REPORT INFORMATION
  Report Type: Spontaneous
  Country: TR (occurrence: TR)
  Receive Date: 20201208
  Receipt Date: 20201208
  Transmission Date: 20210114
  Serious: Yes (Other)
  Sender: FDA-Public Use
  Company Number: TR-ENDO PHARMACEUTICALS INC-2020-007590

PATIENT
  Age: 15 Year
  Sex: Male

DRUGS (2)
  1. VALPROIC ACID. [Suspect]
     Active Substance: VALPROIC ACID
     Indication: EPILEPSY
     Dosage: UNK UNKNOWN, DAILY
     Route: 065
  2. RISPERIDONE. [Suspect]
     Active Substance: RISPERIDONE
     Indication: AUTISM SPECTRUM DISORDER
     Dosage: UNK UNKNOWN, DAILY
     Route: 065

REACTIONS (5)
  - Drug interaction [Recovering/Resolving]
  - Gingival hypertrophy [Unknown]
  - Dysplasia [Recovering/Resolving]
  - Pancytopenia [Recovering/Resolving]
  - Anaemia folate deficiency [Recovering/Resolving]
